FAERS Safety Report 5496740-6 (Version None)
Quarter: 2007Q4

REPORT INFORMATION
  Report Type: 
  Country: None (occurrence: None)
  Receive Date: 20071023
  Receipt Date: 20071023
  Transmission Date: 20080405
  Serious: Yes (Life-Threatening)
  Sender: FDA-Public Use
  Company Number: None

PATIENT

DRUGS (1)
  1. GABAPENTIN [Suspect]

REACTIONS (5)
  - MYALGIA [None]
  - RESPIRATORY DISORDER [None]
  - STOMACH DISCOMFORT [None]
  - VISUAL DISTURBANCE [None]
  - VOMITING [None]
